FAERS Safety Report 21701461 (Version 1)
Quarter: 2022Q4

REPORT INFORMATION
  Report Type: Spontaneous
  Country: CN (occurrence: CN)
  Receive Date: 20221208
  Receipt Date: 20221208
  Transmission Date: 20230113
  Serious: Yes (Death, Hospitalization)
  Sender: FDA-Public Use
  Company Number: CN-TEVA-2022-CN-2833250

PATIENT
  Age: 13 Year
  Sex: Female

DRUGS (3)
  1. LAMOTRIGINE [Suspect]
     Active Substance: LAMOTRIGINE
     Indication: Generalised tonic-clonic seizure
     Dosage: 50 MILLIGRAM DAILY; 2 MG/KG/DAY; EXCEEDED THE RECOMMENDED DOSE BY 13.3 TIMES
     Route: 065
  2. VALPROATE SODIUM [Suspect]
     Active Substance: VALPROATE SODIUM
     Indication: Generalised tonic-clonic seizure
     Dosage: .8 GRAM DAILY;
     Route: 065
  3. CLONAZEPAM [Concomitant]
     Active Substance: CLONAZEPAM
     Indication: Generalised tonic-clonic seizure
     Dosage: 8 MILLIGRAM DAILY;
     Route: 065

REACTIONS (3)
  - Acute hepatic failure [Fatal]
  - Overdose [Fatal]
  - Hepatic encephalopathy [Unknown]
